FAERS Safety Report 13981132 (Version 1)
Quarter: 2017Q3

REPORT INFORMATION
  Report Type: Spontaneous
  Country: US (occurrence: None)
  Receive Date: 20170915
  Receipt Date: 20170915
  Transmission Date: 20171128
  Serious: Yes (Hospitalization)
  Sender: FDA-Public Use
  Company Number: None

PATIENT
  Age: 72 Year
  Sex: Male

DRUGS (14)
  1. CEFPODOXIME [Concomitant]
     Active Substance: CEFPODOXIME
  2. LEVOFLOXACIN. [Concomitant]
     Active Substance: LEVOFLOXACIN
  3. POLYETHYLENE GLYCOL 3350. [Concomitant]
     Active Substance: POLYETHYLENE GLYCOL 3350
  4. PANTOPRAZOLE [Concomitant]
     Active Substance: PANTOPRAZOLE
  5. LINEZOLID. [Suspect]
     Active Substance: LINEZOLID
     Indication: URINARY TRACT INFECTION
     Route: 042
     Dates: end: 20170722
  6. CLINDAMYCIN. [Concomitant]
     Active Substance: CLINDAMYCIN
  7. LACTULOSE. [Concomitant]
     Active Substance: LACTULOSE
  8. HEPARIN [Suspect]
     Active Substance: HEPARIN SODIUM
  9. CEFAZOLIN [Concomitant]
     Active Substance: CEFAZOLIN
  10. TAMSULOSIN [Concomitant]
     Active Substance: TAMSULOSIN
  11. TRAMADOL. [Concomitant]
     Active Substance: TRAMADOL
  12. ONDANSETRON [Concomitant]
     Active Substance: ONDANSETRON
  13. MIDODRINE [Concomitant]
     Active Substance: MIDODRINE
  14. RIFAXIMIN [Concomitant]
     Active Substance: RIFAXIMIN

REACTIONS (2)
  - Hepatic encephalopathy [None]
  - Thrombocytopenia [None]

NARRATIVE: CASE EVENT DATE: 20170722
